FAERS Safety Report 7116693-4 (Version None)
Quarter: 2010Q4

REPORT INFORMATION
  Report Type: 
  Country: None (occurrence: None)
  Receive Date: 20101122
  Receipt Date: 20101115
  Transmission Date: 20110411
  Serious: Yes (Other)
  Sender: FDA-Public Use
  Company Number: B0685411A

PATIENT
  Sex: Male

DRUGS (2)
  1. FLIXONASE [Suspect]
     Route: 045
     Dates: start: 20091207
  2. TELFAST [Suspect]
     Route: 065
     Dates: start: 20091207

REACTIONS (5)
  - ASTHMA [None]
  - LOCAL SWELLING [None]
  - LYMPHADENITIS [None]
  - PRURITUS [None]
  - RASH [None]
